FAERS Safety Report 8743101 (Version 2)
Quarter: 2012Q4

REPORT INFORMATION
  Report Type: 
  Country: FI (occurrence: FI)
  Receive Date: 20120824
  Receipt Date: 20120828
  Transmission Date: 20130627
  Serious: Yes (Hospitalization, Other)
  Sender: FDA-Public Use
  Company Number: PHHY2012FI071283

PATIENT
  Age: 53 Year
  Sex: Male

DRUGS (4)
  1. LEPONEX [Suspect]
     Dosage: UNK UKN, UNK
     Route: 048
  2. LEPONEX [Suspect]
     Dosage: 50 mg, QD
     Route: 048
  3. LEPONEX [Suspect]
     Dosage: 300 mg, QD
     Route: 048
     Dates: start: 201111
  4. LEPONEX [Suspect]
     Dosage: 200 mg, daily

REACTIONS (2)
  - Psychotic disorder [Unknown]
  - Neutrophil count decreased [Unknown]
